FAERS Safety Report 20835258 (Version 1)
Quarter: 2022Q2

REPORT INFORMATION
  Report Type: Spontaneous
  Country: CO (occurrence: CO)
  Receive Date: 20220516
  Receipt Date: 20220516
  Transmission Date: 20220721
  Serious: Yes (Other)
  Sender: FDA-Public Use
  Company Number: CO-BAYER-2020-059180

PATIENT
  Age: 19 Year
  Sex: Female
  Weight: 58 kg

DRUGS (1)
  1. LEVONORGESTREL [Suspect]
     Active Substance: LEVONORGESTREL
     Indication: Product used for unknown indication
     Dosage: LEFT ARM
     Route: 065
     Dates: start: 201611

REACTIONS (1)
  - Heavy menstrual bleeding [Recovered/Resolved with Sequelae]

NARRATIVE: CASE EVENT DATE: 20180606
